FAERS Safety Report 24898105 (Version 1)
Quarter: 2025Q1

REPORT INFORMATION
  Report Type: Report from Study
  Country: KR (occurrence: KR)
  Receive Date: 20250129
  Receipt Date: 20250129
  Transmission Date: 20250409
  Serious: Yes (Hospitalization, Other)
  Sender: TAKEDA
  Company Number: KR-TAKEDA-2025TUS008085

PATIENT
  Age: 47 Year
  Sex: Male
  Weight: 98 kg

DRUGS (53)
  1. VEDOLIZUMAB [Suspect]
     Active Substance: VEDOLIZUMAB
     Indication: Crohn^s disease
  2. Duoclin [Concomitant]
     Indication: Product used for unknown indication
     Dosage: 7.5 MILLIGRAM, BID
     Dates: start: 20240612
  3. TREIN [Concomitant]
     Indication: Product used for unknown indication
     Dosage: 10 MILLIGRAM, QD
     Dates: start: 20240612, end: 20240617
  4. TREIN [Concomitant]
     Dosage: 10 MILLIGRAM, 3/WEEK
     Dates: start: 20240710
  5. MONTERIZINE [Concomitant]
     Indication: Product used for unknown indication
     Dosage: UNK UNK, QD
     Dates: start: 20240612, end: 20240617
  6. MONTERIZINE [Concomitant]
     Dosage: UNK UNK, QD
     Dates: start: 20240710
  7. SERTACONAZOLE NITRATE [Concomitant]
     Active Substance: SERTACONAZOLE NITRATE
     Indication: Product used for unknown indication
     Dosage: 15 MILLIGRAM, BID
     Dates: start: 20240612
  8. DESOWEN [Concomitant]
     Active Substance: DESONIDE
     Indication: Product used for unknown indication
  9. CO FORCE [Concomitant]
     Indication: Product used for unknown indication
     Dates: start: 20230208, end: 20240617
  10. CO FORCE [Concomitant]
     Dates: start: 20240620, end: 20240623
  11. CO FORCE [Concomitant]
  12. Feroba you sr [Concomitant]
     Indication: Product used for unknown indication
     Dosage: UNK UNK, BID
     Dates: start: 20230208, end: 20240617
  13. Feroba you sr [Concomitant]
     Dosage: UNK UNK, BID
     Dates: start: 20240620
  14. Dong a perdipine [Concomitant]
     Indication: Product used for unknown indication
     Dosage: 300 MILLIGRAM, QD
     Dates: start: 20240618
  15. AMINO ACIDS\DEXTROSE\ELECTROLYTES NOS\SOYBEAN OIL [Concomitant]
     Active Substance: AMINO ACIDS\DEXTROSE\ELECTROLYTES NOS\SOYBEAN OIL
     Indication: Nutritional supplementation
     Dates: start: 20240618, end: 20240619
  16. AMINO ACIDS\DEXTROSE\ELECTROLYTES NOS\SOYBEAN OIL [Concomitant]
     Active Substance: AMINO ACIDS\DEXTROSE\ELECTROLYTES NOS\SOYBEAN OIL
  17. PENIRAMIN [Concomitant]
     Indication: Product used for unknown indication
  18. HARMONILAN [Concomitant]
     Indication: Nutritional supplementation
     Dosage: 200 MILLILITER, TID
     Dates: start: 20240619
  19. DICAMAX [Concomitant]
     Indication: Product used for unknown indication
     Dosage: UNK UNK, QD
     Dates: start: 20240619
  20. NEXIUM [Concomitant]
     Active Substance: ESOMEPRAZOLE MAGNESIUM
     Indication: Product used for unknown indication
  21. ESOMEZOLE [Concomitant]
     Indication: Product used for unknown indication
     Dosage: 20 MILLIGRAM, QD
     Dates: start: 20240619
  22. PLENVU [Concomitant]
     Active Substance: ASCORBIC ACID\POLYETHYLENE GLYCOL 3350\POTASSIUM CHLORIDE\SODIUM ASCORBATE\SODIUM CHLORIDE\SODIUM SU
     Indication: Product used for unknown indication
  23. Bc fentanyl citrate [Concomitant]
     Dosage: 0.05 MILLIGRAM, QD
     Dates: start: 20240626
  24. MIDAZOLAM [Concomitant]
     Active Substance: MIDAZOLAM
     Indication: Product used for unknown indication
  25. PROPOFOL [Concomitant]
     Active Substance: PROPOFOL
     Indication: Product used for unknown indication
  26. ENDOCOL [Concomitant]
     Indication: Product used for unknown indication
  27. BROPIUM [Concomitant]
     Indication: Product used for unknown indication
  28. Dermo [Concomitant]
     Indication: Product used for unknown indication
  29. TAMCETON [Concomitant]
     Indication: Product used for unknown indication
  30. BOLGRE [Concomitant]
     Indication: Product used for unknown indication
     Dosage: UNK UNK, BID
     Dates: start: 20241113, end: 20241127
  31. BOLGRE [Concomitant]
     Dosage: 20 MILLILITER, BID
     Dates: start: 20240724
  32. INFLUVAC TETRA [Concomitant]
     Active Substance: INFLUENZA VIRUS VACCINE QUADRIVALENT TYPE A+B
     Indication: Product used for unknown indication
  33. FOLIC ACID [Concomitant]
     Active Substance: FOLIC ACID
     Indication: Product used for unknown indication
     Dosage: 1 MILLIGRAM, QD
     Dates: start: 20241016
  34. Acetaphen [Concomitant]
     Indication: Product used for unknown indication
  35. METOCLOPRAMIDE HYDROCHLORIDE [Concomitant]
     Active Substance: METOCLOPRAMIDE HYDROCHLORIDE
     Indication: Product used for unknown indication
  36. PLASMA SOLUTION A [Concomitant]
     Indication: Product used for unknown indication
  37. TYLENOL 8HR [Concomitant]
     Active Substance: ACETAMINOPHEN
     Indication: Product used for unknown indication
     Dates: start: 20241211, end: 20241211
  38. TYLENOL 8HR [Concomitant]
     Active Substance: ACETAMINOPHEN
  39. HUMIRA [Concomitant]
     Active Substance: ADALIMUMAB
     Indication: Product used for unknown indication
     Dates: start: 20141112, end: 20141112
  40. HUMIRA [Concomitant]
     Active Substance: ADALIMUMAB
     Dates: start: 20141209, end: 20141209
  41. HUMIRA [Concomitant]
     Active Substance: ADALIMUMAB
  42. INFLIXIMAB [Concomitant]
     Active Substance: INFLIXIMAB
     Indication: Product used for unknown indication
     Dates: start: 20170318, end: 20220914
  43. INFLIXIMAB [Concomitant]
     Active Substance: INFLIXIMAB
  44. STELARA [Concomitant]
     Active Substance: USTEKINUMAB
     Indication: Product used for unknown indication
     Dates: start: 20230222, end: 20230222
  45. STELARA [Concomitant]
     Active Substance: USTEKINUMAB
     Dates: start: 20230419, end: 20230419
  46. STELARA [Concomitant]
     Active Substance: USTEKINUMAB
  47. RINVOQ [Concomitant]
     Active Substance: UPADACITINIB
     Indication: Product used for unknown indication
     Dates: start: 20240508, end: 20240604
  48. RINVOQ [Concomitant]
     Active Substance: UPADACITINIB
  49. SOLONDO [Concomitant]
     Indication: Product used for unknown indication
  50. METHOTREXATE [Concomitant]
     Active Substance: METHOTREXATE
     Indication: Product used for unknown indication
  51. INFLIXIMAB [Concomitant]
     Active Substance: INFLIXIMAB
     Indication: Product used for unknown indication
     Dates: start: 20241211, end: 20241211
  52. INFLIXIMAB [Concomitant]
     Active Substance: INFLIXIMAB
  53. AZATHIOPRINE [Concomitant]
     Active Substance: AZATHIOPRINE
     Indication: Product used for unknown indication
     Dosage: 50 MILLIGRAM, QD
     Dates: start: 20241211

REACTIONS (1)
  - Crohn^s disease [Recovered/Resolved]

NARRATIVE: CASE EVENT DATE: 20250107
